FAERS Safety Report 21466701 (Version 4)
Quarter: 2023Q1

REPORT INFORMATION
  Report Type: Spontaneous
  Country: KR (occurrence: KR)
  Receive Date: 20221017
  Receipt Date: 20230306
  Transmission Date: 20230417
  Serious: No
  Sender: FDA-Public Use
  Company Number: KR-PFIZER INC-PV202200069537

PATIENT
  Age: 8 Year
  Sex: Male

DRUGS (1)
  1. GENOTROPIN [Suspect]
     Active Substance: SOMATROPIN
     Indication: Short stature
     Dosage: 5.3 MG, 6 TIMES A WEEK (5.3 MG DIVIDED IN FOUR TIMES)
     Route: 058
     Dates: start: 20220217

REACTIONS (2)
  - Liquid product physical issue [Unknown]
  - Poor quality device used [Unknown]

NARRATIVE: CASE EVENT DATE: 20220101
